FAERS Safety Report 19570861 (Version 2)
Quarter: 2021Q4

REPORT INFORMATION
  Report Type: Spontaneous
  Country: US (occurrence: US)
  Receive Date: 20210716
  Receipt Date: 20211217
  Transmission Date: 20220303
  Serious: No
  Sender: FDA-Public Use
  Company Number: US-BEH-2021134057

PATIENT
  Sex: Female

DRUGS (2)
  1. PRIVIGEN [Suspect]
     Active Substance: HUMAN IMMUNOGLOBULIN G
     Indication: Chronic inflammatory demyelinating polyradiculoneuropathy
     Dosage: 70 GRAM, EVERY 4-5 WEEKS
     Route: 042
     Dates: start: 202012
  2. PRIVIGEN [Suspect]
     Active Substance: HUMAN IMMUNOGLOBULIN G
     Indication: Psoriatic arthropathy
     Dosage: 70 GRAM, EVERY 4-5 WEEKS
     Route: 042
     Dates: start: 20191217

REACTIONS (5)
  - Pruritus [Unknown]
  - Burning sensation [Unknown]
  - Pain [Unknown]
  - No adverse event [Unknown]
  - Off label use [Unknown]
